FAERS Safety Report 24564141 (Version 2)
Quarter: 2024Q4

REPORT INFORMATION
  Report Type: Spontaneous
  Country: US (occurrence: US)
  Receive Date: 20241030
  Receipt Date: 20241101
  Transmission Date: 20250115
  Serious: Yes (Hospitalization)
  Sender: AMGEN
  Company Number: US-AMGEN-USASP2024213136

PATIENT
  Age: 19 Year
  Sex: Male

DRUGS (2)
  1. ACTIMMUNE [Suspect]
     Active Substance: INTERFERON GAMMA-1B
     Indication: Neutrophil function disorder
     Dosage: 0.43 MILLIGRAM, 3 TIMES/WK (86 MCG ON MONDAY, WEDNESDAY, AND FRIDAY) (100MCG/.5)
     Route: 058
     Dates: start: 201910
  2. ACTIMMUNE [Suspect]
     Active Substance: INTERFERON GAMMA-1B
     Indication: Granuloma
     Dosage: 86 MICROGRAM, 3 TIMES/WK (100MCG/.5) (0.5ML/VL)
     Route: 058

REACTIONS (2)
  - Pneumonia [Recovered/Resolved]
  - Emergency care [Unknown]

NARRATIVE: CASE EVENT DATE: 20240101
